FAERS Safety Report 14305062 (Version 1)
Quarter: 2017Q4

REPORT INFORMATION
  Report Type: Spontaneous
  Country: JP (occurrence: JP)
  Receive Date: 20171219
  Receipt Date: 20171219
  Transmission Date: 20180321
  Serious: Yes (Other)
  Sender: FDA-Public Use
  Company Number: JP-OTSUKA-BJ20091457

PATIENT
  Age: 35 Year
  Sex: Female
  Weight: 80 kg

DRUGS (9)
  1. NELBIS [Concomitant]
     Active Substance: METFORMIN HYDROCHLORIDE
     Indication: DIABETES MELLITUS
     Dosage: UNK
     Route: 048
  2. DEPAS [Concomitant]
     Active Substance: ETIZOLAM
     Dosage: 3 MG, TID
     Route: 048
     Dates: start: 20090107
  3. ABILIFY [Suspect]
     Active Substance: ARIPIPRAZOLE
     Indication: PERFORMANCE STATUS DECREASED
     Dosage: 3 MG, BID
     Route: 048
     Dates: start: 20081003, end: 20081024
  4. ABILIFY [Suspect]
     Active Substance: ARIPIPRAZOLE
     Dosage: 9 MG, TID
     Route: 048
     Dates: start: 20090404, end: 20090404
  5. INSULIN [Concomitant]
     Active Substance: INSULIN NOS
     Indication: DIABETES MELLITUS
     Dosage: INJECTION
     Route: 065
  6. ABILIFY [Suspect]
     Active Substance: ARIPIPRAZOLE
     Indication: ABULIA
     Dosage: 3 MG, QD
     Route: 048
     Dates: start: 20081025, end: 20090403
  7. AMARYL [Concomitant]
     Active Substance: GLIMEPIRIDE
     Indication: DIABETES MELLITUS
     Dosage: UNK
     Route: 065
  8. JZOLOFT [Concomitant]
     Active Substance: SERTRALINE HYDROCHLORIDE
     Indication: DEPRESSED MOOD
     Dosage: 50 MG, QD
     Route: 048
     Dates: start: 20090306
  9. DEPAS [Concomitant]
     Active Substance: ETIZOLAM
     Indication: IRRITABILITY
     Dosage: 1.5 MG, TID
     Route: 048
     Dates: start: 20081008, end: 20090106

REACTIONS (2)
  - Epilepsy [Recovered/Resolved]
  - Affective disorder [Unknown]

NARRATIVE: CASE EVENT DATE: 20090404
